FAERS Safety Report 24988289 (Version 1)
Quarter: 2025Q1

REPORT INFORMATION
  Report Type: Spontaneous
  Country: US (occurrence: US)
  Receive Date: 20250220
  Receipt Date: 20250220
  Transmission Date: 20250408
  Serious: Yes (Other)
  Sender: ALEXION PHARMACEUTICALS
  Company Number: US-AstraZeneca-CH-00807699A

PATIENT

DRUGS (1)
  1. BREZTRI [Suspect]
     Active Substance: BUDESONIDE\FORMOTEROL\GLYCOPYRROLATE
     Route: 065

REACTIONS (6)
  - Loss of consciousness [Unknown]
  - Pollakiuria [Unknown]
  - Panic attack [Unknown]
  - Chest pain [Unknown]
  - Middle insomnia [Unknown]
  - Feeling abnormal [Unknown]
